FAERS Safety Report 6267977-3 (Version None)
Quarter: 2009Q3

REPORT INFORMATION
  Report Type: 
  Country: None (occurrence: None)
  Receive Date: 20090713
  Receipt Date: 20090701
  Transmission Date: 20100115
  Serious: Yes (Other)
  Sender: FDA-Public Use
  Company Number: A-NJ2009-25357

PATIENT
  Age: 67 Year
  Sex: Female
  Weight: 91.6 kg

DRUGS (3)
  1. TRACLEER [Suspect]
     Indication: PULMONARY ARTERIAL HYPERTENSION
     Dosage: 62.5 MG, BID, ORAL
     Route: 048
     Dates: start: 20020816, end: 20090512
  2. ACTIGALL [Concomitant]
  3. TRIAMTERENE (TRIAMTERENE) [Concomitant]

REACTIONS (1)
  - BILIARY CIRRHOSIS PRIMARY [None]
